FAERS Safety Report 9928596 (Version 1)
Quarter: 2014Q1

REPORT INFORMATION
  Report Type: Spontaneous
  Country: KR (occurrence: None)
  Receive Date: 20140225
  Receipt Date: 20140225
  Transmission Date: 20141002
  Serious: Yes (Hospitalization)
  Sender: FDA-Public Use
  Company Number: 2014P1001368

PATIENT
  Age: 49 Year
  Sex: Male

DRUGS (7)
  1. PHENYTOIN [Suspect]
     Indication: TEMPORAL LOBE EPILEPSY
     Dosage: 50 TABLETS; X1, PO
     Route: 048
  2. ABACAVIR [Concomitant]
  3. LAMIVUDINE [Concomitant]
  4. LOPINAVIR [Concomitant]
  5. RITONAVIR [Concomitant]
  6. VITAMIN B [Concomitant]
  7. VITAMIN C [Concomitant]

REACTIONS (12)
  - Intentional overdose [None]
  - Suicide attempt [None]
  - Coma [None]
  - Anaemia [None]
  - Lung infiltration [None]
  - Respiratory failure [None]
  - Polymerase chain reaction [None]
  - Tuberculosis [None]
  - Pneumocystis jirovecii infection [None]
  - Depressed level of consciousness [None]
  - Aspartate aminotransferase increased [None]
  - Alanine aminotransferase increased [None]
